FAERS Safety Report 7653761-2 (Version None)
Quarter: 2011Q3

REPORT INFORMATION
  Report Type: 
  Country: None (occurrence: None)
  Receive Date: 20110803
  Receipt Date: 20110726
  Transmission Date: 20111222
  Serious: Yes (Hospitalization)
  Sender: FDA-Public Use
  Company Number: US-GLAXOSMITHKLINE-A0939422A

PATIENT
  Age: 19 Year
  Sex: Male

DRUGS (8)
  1. NAMENDA [Concomitant]
  2. RISPERDAL [Concomitant]
  3. ABILIFY [Concomitant]
  4. LAMICTAL [Suspect]
     Indication: BIPOLAR DISORDER
     Dosage: 300MG PER DAY
     Route: 048
     Dates: end: 20080701
  5. EFFEXOR [Concomitant]
  6. INDERAL [Concomitant]
  7. VITAMIN E [Concomitant]
  8. FISH OIL [Concomitant]

REACTIONS (2)
  - STEVENS-JOHNSON SYNDROME [None]
  - EYE INFECTION STAPHYLOCOCCAL [None]
